FAERS Safety Report 22287727 (Version 2)
Quarter: 2023Q4

REPORT INFORMATION
  Report Type: Other
  Country: GB (occurrence: None)
  Receive Date: 20230505
  Receipt Date: 20231030
  Transmission Date: 20240109
  Serious: No
  Sender: FDA-Public Use
  Company Number: GB-ROCHE-3334363

PATIENT
  Age: 48 Year
  Sex: Male

DRUGS (3)
  1. OCREVUS [Suspect]
     Active Substance: OCRELIZUMAB
     Indication: Primary progressive multiple sclerosis
     Dosage: MORE DOSAGE INFORMATION: 1ST DOSE. ONGOING: NO
     Route: 041
     Dates: start: 20230418, end: 20230418
  2. OCREVUS [Suspect]
     Active Substance: OCRELIZUMAB
     Indication: Relapsing-remitting multiple sclerosis
     Dosage: 2ND DOSE?SOLUTION FOR INFUSION AFTER DILUTION
     Route: 041
     Dates: start: 20230502
  3. OCREVUS [Suspect]
     Active Substance: OCRELIZUMAB
     Dosage: 2ND FULL DOSE. SOLUTION FOR INFUSION AFTER DILUTION
     Route: 041
     Dates: start: 20231026

REACTIONS (2)
  - Hypotension [Recovered/Resolved]
  - Oral herpes [Unknown]

NARRATIVE: CASE EVENT DATE: 20230418
